FAERS Safety Report 8150234-8 (Version None)
Quarter: 2012Q1

REPORT INFORMATION
  Report Type: 
  Country: None (occurrence: None)
  Receive Date: 20120220
  Receipt Date: 20120210
  Transmission Date: 20120608
  Serious: Yes (Other)
  Sender: FDA-Public Use
  Company Number: US-PFIZER INC-2012041138

PATIENT
  Sex: Female
  Weight: 72.109 kg

DRUGS (3)
  1. OXYCODONE HYDROCHLORIDE [Suspect]
  2. PREDNISOLONE [Suspect]
  3. MORPHINE SULFATE [Suspect]

REACTIONS (1)
  - DRUG HYPERSENSITIVITY [None]
